FAERS Safety Report 6015296-2 (Version None)
Quarter: 2008Q4

REPORT INFORMATION
  Report Type: 
  Country: None (occurrence: None)
  Receive Date: 20081218
  Receipt Date: 20081205
  Transmission Date: 20090506
  Serious: Yes (Hospitalization)
  Sender: FDA-Public Use
  Company Number: 8037804

PATIENT
  Age: 36 Year
  Sex: Female
  Weight: 102.3 kg

DRUGS (7)
  1. CIMZIA [Suspect]
     Dates: start: 20080501
  2. DARVOCET-N 100 [Concomitant]
  3. PENTASA [Concomitant]
  4. VITAMIN B-12 [Concomitant]
  5. VITAMIN D [Concomitant]
  6. ZOLOFT [Concomitant]
  7. MEDROL [Concomitant]

REACTIONS (11)
  - DEHYDRATION [None]
  - FIBROMYALGIA [None]
  - NAUSEA [None]
  - OEDEMA PERIPHERAL [None]
  - PAIN [None]
  - PANNICULITIS [None]
  - PARONYCHIA [None]
  - RASH [None]
  - STAPHYLOCOCCAL INFECTION [None]
  - VASCULITIS [None]
  - VOMITING [None]
